FAERS Safety Report 8331678-8 (Version None)
Quarter: 2012Q2

REPORT INFORMATION
  Report Type: 
  Country: None (occurrence: None)
  Receive Date: 20120502
  Receipt Date: 20110812
  Transmission Date: 20120825
  Serious: No
  Sender: FDA-Public Use
  Company Number: US-ASTRAZENECA-2011SE48769

PATIENT

DRUGS (2)
  1. BUDESONIDE [Suspect]
     Route: 048
  2. DULOXETIME HYDROCHLORIDE [Interacting]

REACTIONS (2)
  - DRUG INTERACTION [None]
  - DEPRESSION [None]
